FAERS Safety Report 16074980 (Version 2)
Quarter: 2019Q2

REPORT INFORMATION
  Report Type: Spontaneous
  Country: US (occurrence: US)
  Receive Date: 20190315
  Receipt Date: 20190402
  Transmission Date: 20190711
  Serious: No
  Sender: FDA-Public Use
  Company Number: US-LUPIN PHARMACEUTICALS INC.-2019-01338

PATIENT
  Age: 6 Year
  Sex: Male

DRUGS (1)
  1. OSELTAMIVIR PHOSPHATE FOR ORAL SUSPENSION, 6 MG/ML [Suspect]
     Active Substance: OSELTAMIVIR PHOSPHATE
     Indication: INFLUENZA
     Dosage: 7.5 MILLILITER, BID
     Route: 048
     Dates: start: 20190221, end: 20190224

REACTIONS (8)
  - Decreased activity [Recovering/Resolving]
  - Irritability [Recovered/Resolved]
  - Decreased appetite [Recovering/Resolving]
  - Crying [Recovering/Resolving]
  - Condition aggravated [Recovered/Resolved]
  - Abdominal discomfort [Recovered/Resolved]
  - Drug ineffective [Unknown]
  - Malaise [Recovering/Resolving]

NARRATIVE: CASE EVENT DATE: 20190221
